FAERS Safety Report 16893281 (Version 1)
Quarter: 2019Q4

REPORT INFORMATION
  Report Type: Report from Study
  Country: JP (occurrence: JP)
  Receive Date: 20191008
  Receipt Date: 20191008
  Transmission Date: 20200122
  Serious: Yes (Other)
  Sender: FDA-Public Use
  Company Number: JP-ROCHE-2433043

PATIENT

DRUGS (5)
  1. MYCOPHENOLATE MOFETIL. [Suspect]
     Active Substance: MYCOPHENOLATE MOFETIL
     Indication: PROPHYLAXIS AGAINST TRANSPLANT REJECTION
     Dosage: THE DOSE OF MYCOPHENOLATE MOFETIL WAS DECREASED TO 1000-1500 MG/DAY APPROXIMATELY 2 WEEKS AFTER TRAN
     Route: 065
  2. TACROLIMUS. [Suspect]
     Active Substance: TACROLIMUS
     Indication: PROPHYLAXIS AGAINST TRANSPLANT REJECTION
     Dosage: THE DOSE OF TACROLIMUS WAS ADJUSTED TO MAINTAIN A TROUGH LEVEL OF 6-8 NG/ML FOR 1-2 MONTHS AFTER THE
     Route: 065
  3. RITUXIMAB. [Suspect]
     Active Substance: RITUXIMAB
     Indication: PROPHYLAXIS AGAINST TRANSPLANT REJECTION
     Dosage: RITUXIMAB WAS ADMINISTERED AS A SINGLE DOSE (200 MG) WITHIN 2-5 DAYS (MEDIAN 3 DAYS) BEFORE THE OPER
     Route: 065
  4. BASILIXIMAB [Suspect]
     Active Substance: BASILIXIMAB
     Indication: PROPHYLAXIS AGAINST TRANSPLANT REJECTION
     Route: 065
  5. METHYLPREDNISOLONE. [Suspect]
     Active Substance: METHYLPREDNISOLONE
     Indication: PROPHYLAXIS AGAINST TRANSPLANT REJECTION
     Dosage: METHYLPREDNISOLONE WAS ADMINISTERED INTRAVENOUSLY AT DOSES OF 500, 250 AND 125 MG/DAY ON THE DAY OF
     Route: 065

REACTIONS (8)
  - Diabetes mellitus [Unknown]
  - Cytomegalovirus infection [Unknown]
  - Febrile neutropenia [Unknown]
  - Cardiovascular disorder [Unknown]
  - Pneumonia [Unknown]
  - Urinary tract infection [Unknown]
  - Infection [Unknown]
  - Hypertension [Unknown]
